FAERS Safety Report 8085524-0 (Version None)
Quarter: 2012Q1

REPORT INFORMATION
  Report Type: 
  Country: None (occurrence: None)
  Receive Date: 20120128
  Receipt Date: 20110413
  Transmission Date: 20120608
  Serious: Yes (Hospitalization)
  Sender: FDA-Public Use
  Company Number: US-ABBOTT-11P-163-0711101-00

PATIENT
  Sex: Male
  Weight: 78.996 kg

DRUGS (8)
  1. CANASA [Concomitant]
     Indication: CROHN'S DISEASE
     Route: 054
  2. HUMIRA [Suspect]
     Dates: start: 20110201, end: 20110218
  3. FOLIC ACID [Concomitant]
     Indication: VITAMIN SUPPLEMENTATION
     Dosage: DAILY
  4. ACETAMINOPHEN [Concomitant]
     Indication: PYREXIA
  5. CANASA [Concomitant]
     Indication: HAEMATOCHEZIA
  6. HUMIRA [Suspect]
     Dosage: 80 MG LOADING DOSE
     Dates: start: 20110201, end: 20110201
  7. HUMIRA [Suspect]
     Indication: CROHN'S DISEASE
     Dosage: 160 MG LOADING DOSE
     Dates: start: 20110203, end: 20110203
  8. SULFASALAZINE [Concomitant]
     Indication: CROHN'S DISEASE
     Dosage: DAILY

REACTIONS (4)
  - ASTHENIA [None]
  - INFECTION [None]
  - CHILLS [None]
  - PYREXIA [None]
